FAERS Safety Report 24532880 (Version 2)
Quarter: 2024Q4

REPORT INFORMATION
  Report Type: Spontaneous
  Country: US (occurrence: US)
  Receive Date: 20241022
  Receipt Date: 20241203
  Transmission Date: 20250114
  Serious: Yes (Hospitalization)
  Sender: LUPIN
  Company Number: US-LUPIN PHARMACEUTICALS INC.-2024-10180

PATIENT

DRUGS (5)
  1. LISINOPRIL [Suspect]
     Active Substance: LISINOPRIL
     Indication: Blood pressure abnormal
     Dosage: UNK
     Route: 065
  2. LISINOPRIL [Suspect]
     Active Substance: LISINOPRIL
     Dosage: UNK
     Route: 065
  3. LISINOPRIL [Suspect]
     Active Substance: LISINOPRIL
     Dosage: UNK
     Route: 065
  4. LISINOPRIL [Suspect]
     Active Substance: LISINOPRIL
     Dosage: UNK
     Route: 065
  5. LISINOPRIL [Suspect]
     Active Substance: LISINOPRIL
     Dosage: UNK
     Route: 065

REACTIONS (2)
  - Blood pressure increased [Recovered/Resolved]
  - Product substitution issue [Unknown]

NARRATIVE: CASE EVENT DATE: 20241004
